FAERS Safety Report 6115746-7 (Version None)
Quarter: 2009Q1

REPORT INFORMATION
  Report Type: 
  Country: None (occurrence: None)
  Receive Date: 20090313
  Receipt Date: 20081229
  Transmission Date: 20090719
  Serious: No
  Sender: FDA-Public Use
  Company Number: US-ABBOTT-08P-163-0495094-00

PATIENT
  Sex: Female

DRUGS (1)
  1. ADALIMUMAB [Suspect]
     Indication: RHEUMATOID ARTHRITIS
     Dates: start: 20071101

REACTIONS (5)
  - ARTHRALGIA [None]
  - CHILLS [None]
  - COUGH [None]
  - INCREASED UPPER AIRWAY SECRETION [None]
  - PYREXIA [None]
